FAERS Safety Report 5931422-5 (Version None)
Quarter: 2008Q4

REPORT INFORMATION
  Report Type: 
  Country: None (occurrence: None)
  Receive Date: 20081024
  Receipt Date: 20081024
  Transmission Date: 20090506
  Serious: Yes (Other)
  Sender: FDA-Public Use
  Company Number: None

PATIENT
  Age: 68 Year
  Sex: Male
  Weight: 81.6475 kg

DRUGS (2)
  1. EFFEXOR [Suspect]
     Indication: ANXIETY
     Dosage: 75 MG DAILY PO
     Route: 048
     Dates: start: 20080920, end: 20081020
  2. EFFEXOR [Suspect]
     Indication: DEPRESSION
     Dosage: 75 MG DAILY PO
     Route: 048
     Dates: start: 20080920, end: 20081020

REACTIONS (7)
  - DIZZINESS [None]
  - DRUG DOSE OMISSION [None]
  - EAR DISCOMFORT [None]
  - PSYCHOTIC DISORDER [None]
  - STRESS [None]
  - SUICIDAL IDEATION [None]
  - TINNITUS [None]
